FAERS Safety Report 10276411 (Version 1)
Quarter: 2014Q3

REPORT INFORMATION
  Report Type: Spontaneous
  Country: US (occurrence: US)
  Receive Date: 20140703
  Receipt Date: 20140703
  Transmission Date: 20150326
  Serious: No
  Sender: FDA-Public Use
  Company Number: US-PFIZER INC-2014178318

PATIENT
  Age: 63 Year
  Sex: Female
  Weight: 61.68 kg

DRUGS (4)
  1. ZYRTEC [Concomitant]
     Active Substance: CETIRIZINE HYDROCHLORIDE
     Indication: HYPERSENSITIVITY
     Dosage: UNK
  2. ZITHROMAX [Suspect]
     Active Substance: AZITHROMYCIN DIHYDRATE
     Indication: INFLUENZA
     Dosage: UNK
  3. REMICADE [Suspect]
     Active Substance: INFLIXIMAB
     Indication: COLITIS ULCERATIVE
     Dosage: UNK (1 IN 9 WEEK)
     Route: 042
     Dates: start: 200812
  4. VICODIN [Concomitant]
     Active Substance: ACETAMINOPHEN\HYDROCODONE BITARTRATE
     Indication: HYPERSENSITIVITY
     Dosage: UNK
     Dates: start: 20140513

REACTIONS (7)
  - Seasonal allergy [Unknown]
  - Head discomfort [Unknown]
  - Herpes zoster [Unknown]
  - Weight increased [Unknown]
  - Feeling abnormal [Unknown]
  - Influenza [Not Recovered/Not Resolved]
  - Dizziness [Unknown]

NARRATIVE: CASE EVENT DATE: 20140512
